FAERS Safety Report 5187979-8 (Version None)
Quarter: 2006Q4

REPORT INFORMATION
  Report Type: 
  Country: None (occurrence: None)
  Receive Date: 20061221
  Receipt Date: 20061208
  Transmission Date: 20070319
  Serious: Yes (Hospitalization)
  Sender: FDA-Public Use
  Company Number: CH-BAYER-200616238GDS

PATIENT
  Age: 36 Year
  Sex: Female

DRUGS (2)
  1. PRETUVAL (PARACETAMOL / DEXTROMETORPHAN / PSEUDOEPHEDRINE) [Suspect]
     Indication: NASOPHARYNGITIS
     Dosage: UNIT DOSE: 350 MG
     Route: 048
     Dates: start: 20061001, end: 20061009
  2. TEGRETOL [Concomitant]
     Indication: GRAND MAL CONVULSION
     Dosage: TOTAL DAILY DOSE: 600 MG  UNIT DOSE: 200 MG
     Route: 048

REACTIONS (3)
  - CONDITION AGGRAVATED [None]
  - GRAND MAL CONVULSION [None]
  - MEDICATION ERROR [None]
